FAERS Safety Report 12217691 (Version 1)
Quarter: 2016Q1

REPORT INFORMATION
  Report Type: Spontaneous
  Country: US (occurrence: None)
  Receive Date: 20160328
  Receipt Date: 20160328
  Transmission Date: 20160526
  Serious: No
  Sender: FDA-Public Use
  Company Number: None

PATIENT
  Age: 47 Year
  Sex: Male
  Weight: 136.08 kg

DRUGS (12)
  1. DHEA [Concomitant]
     Active Substance: PRASTERONE
  2. ALPHA LIPOIC ACID [Concomitant]
     Active Substance: .ALPHA.-LIPOIC ACID
  3. LANZOPRAZOLE [Concomitant]
     Active Substance: LANSOPRAZOLE
  4. NICOTINE. [Concomitant]
     Active Substance: NICOTINE
  5. ATORVASTATIN [Concomitant]
     Active Substance: ATORVASTATIN
  6. JANUVIA [Concomitant]
     Active Substance: SITAGLIPTIN PHOSPHATE
  7. VALSARTAN AND HYDROCHLOROTHIAZIDE [Concomitant]
     Active Substance: HYDROCHLOROTHIAZIDE\VALSARTAN
  8. OMEGA 3 ESTERS [Concomitant]
  9. COQ10 [Concomitant]
     Active Substance: UBIDECARENONE
  10. MEGA MEN VITAMIN [Concomitant]
  11. BYETTA [Suspect]
     Active Substance: EXENATIDE
     Indication: TYPE 2 DIABETES MELLITUS
     Dosage: 1 INJECTION(S) TWICE A DAY SUBCUTANEOUS
     Route: 058
     Dates: start: 20160308
  12. METFORMIN [Concomitant]
     Active Substance: METFORMIN HYDROCHLORIDE

REACTIONS (1)
  - Muscle spasms [None]

NARRATIVE: CASE EVENT DATE: 20160325
